FAERS Safety Report 9863495 (Version 1)
Quarter: 2014Q1

REPORT INFORMATION
  Report Type: Spontaneous
  Country: US (occurrence: US)
  Receive Date: 20140203
  Receipt Date: 20140203
  Transmission Date: 20141002
  Serious: Yes (Other)
  Sender: FDA-Public Use
  Company Number: US-ELI_LILLY_AND_COMPANY-US201401009205

PATIENT
  Age: 58 Year
  Sex: Male

DRUGS (7)
  1. HUMALOG LISPRO [Suspect]
     Indication: TYPE 2 DIABETES MELLITUS
     Dosage: 8 U, TID
     Route: 065
     Dates: start: 20140117, end: 20140121
  2. LANTUS [Concomitant]
     Dosage: 70 U, UNKNOWN
     Dates: start: 2004
  3. LANTUS [Concomitant]
     Dosage: 66 U, UNKNOWN
  4. GLUCOPHAGE [Concomitant]
     Dosage: 10 MG, UNKNOWN
  5. METFORMIN [Concomitant]
     Dosage: 100 MG, BID
  6. LISINOPRIL [Concomitant]
  7. TOPROL [Concomitant]
     Dosage: 100 MG, BID

REACTIONS (2)
  - Blood pressure increased [Unknown]
  - Hypoglycaemia [Unknown]
